FAERS Safety Report 8973177 (Version 1)
Quarter: 2012Q4

REPORT INFORMATION
  Report Type: 
  Country: DE (occurrence: DE)
  Receive Date: 20121219
  Receipt Date: 20121219
  Transmission Date: 20130627
  Serious: Yes (Other)
  Sender: FDA-Public Use
  Company Number: DE-JNJFOC-20121207424

PATIENT

DRUGS (7)
  1. DOXORUBICIN [Suspect]
     Indication: B-CELL LYMPHOMA
     Dosage: on day 1 every 14 days (R-CHOEP-14)
     Route: 042
  2. CYCLOPHOSPHAMIDE [Suspect]
     Indication: B-CELL LYMPHOMA
     Dosage: on day 1 every 14 days (R-CHOEP-14)
     Route: 065
  3. VINCRISTINE [Suspect]
     Indication: B-CELL LYMPHOMA
     Dosage: on day 1 every 14 days (R-CHOEP-14)
     Route: 065
  4. ETOPOSIDE [Suspect]
     Indication: B-CELL LYMPHOMA
     Dosage: on days 1-3 every 14 days (R-CHOEP-14)
     Route: 065
  5. PREDNISONE [Suspect]
     Indication: B-CELL LYMPHOMA
     Dosage: on days 1-5 every 14 days (R-CHOEP-14)
     Route: 065
  6. RITUXIMAB [Suspect]
     Indication: B-CELL LYMPHOMA
     Dosage: on day 0 of cycles 1-4, 6, and 8, each cycle of 14 days (R-CHOEP-14)
     Route: 065
  7. GRANULOCYTE COLONY STIMULATING FACTOR [Suspect]
     Indication: PROPHYLAXIS
     Dosage: 2X5 ug/kg started on day 6 after cycle 1
     Route: 065

REACTIONS (1)
  - Myelodysplastic syndrome [Unknown]
